FAERS Safety Report 19678352 (Version 3)
Quarter: 2021Q3

REPORT INFORMATION
  Report Type: Report from Study
  Country: None (occurrence: PL)
  Receive Date: 20210810
  Receipt Date: 20210921
  Transmission Date: 20211014
  Serious: Yes (Death, Hospitalization)
  Sender: FDA-Public Use
  Company Number: PL-ABBVIE-21K-129-4029694-00

PATIENT
  Age: 57 Year
  Sex: Male

DRUGS (2)
  1. DUODOPA [Suspect]
     Active Substance: CARBIDOPA\LEVODOPA
     Indication: PARKINSON^S DISEASE
     Dosage: MORNING DOSE 9 ML, CONTINUOUS DOSE 2.8 ML / H, EXTRA DOSE 1.2?ML
     Route: 050
     Dates: start: 20210712
  2. DUODOPA [Suspect]
     Active Substance: CARBIDOPA\LEVODOPA

REACTIONS (18)
  - Septic shock [Fatal]
  - Seizure [Unknown]
  - Postoperative wound infection [Recovering/Resolving]
  - Renal impairment [Unknown]
  - Paresis [Unknown]
  - Extrapyramidal disorder [Unknown]
  - Decubitus ulcer [Unknown]
  - Spinal operation [Recovered/Resolved]
  - Proteus infection [Unknown]
  - Dystonia [Unknown]
  - Clostridium difficile infection [Unknown]
  - Bradykinesia [Unknown]
  - Joint range of motion decreased [Unknown]
  - Hypertonia [Unknown]
  - Facial asymmetry [Unknown]
  - Post procedural complication [Unknown]
  - Dysarthria [Unknown]
  - Reduced facial expression [Unknown]

NARRATIVE: CASE EVENT DATE: 2021
